FAERS Safety Report 16193099 (Version 1)
Quarter: 2019Q2

REPORT INFORMATION
  Report Type: Spontaneous
  Country: KR (occurrence: KR)
  Receive Date: 20190413
  Receipt Date: 20190413
  Transmission Date: 20190711
  Serious: Yes (Hospitalization, Other)
  Sender: FDA-Public Use
  Company Number: KR-ROCHE-2301942

PATIENT
  Age: -2 Year
  Sex: Female
  Weight: 92 kg

DRUGS (38)
  1. CURAN [Concomitant]
     Active Substance: RANITIDINE HYDROCHLORIDE
     Route: 048
     Dates: start: 20151103
  2. ADALAT [Concomitant]
     Active Substance: NIFEDIPINE
     Indication: HYPERTENSION
     Route: 048
     Dates: start: 20151025
  3. ACTOS [Concomitant]
     Active Substance: PIOGLITAZONE HYDROCHLORIDE
     Indication: DIABETES MELLITUS
     Route: 048
     Dates: start: 20151023
  4. URSA [Concomitant]
     Active Substance: URSODIOL
     Route: 048
     Dates: start: 20160229
  5. KYTRIL [Concomitant]
     Active Substance: GRANISETRON HYDROCHLORIDE
     Indication: VOMITING
     Route: 042
     Dates: start: 20160203, end: 20160204
  6. MGO2 [Concomitant]
     Route: 048
     Dates: start: 20151103
  7. TORSEM [Concomitant]
     Route: 048
     Dates: start: 20151103
  8. DIPEPTIVEN [Concomitant]
     Active Substance: ALANYL GLUTAMINE
     Route: 042
     Dates: start: 20160203, end: 20160227
  9. FURTMAN [Concomitant]
     Route: 042
     Dates: start: 20160203, end: 20160227
  10. NEURONTIN (SOUTH KOREA) [Concomitant]
     Route: 048
     Dates: start: 20151103
  11. COZAAR [Concomitant]
     Active Substance: LOSARTAN POTASSIUM
     Indication: HYPERTENSION
     Route: 048
     Dates: start: 20151025
  12. SYNTHROID [Concomitant]
     Active Substance: LEVOTHYROXINE SODIUM
     Indication: THYROID CANCER
     Route: 048
     Dates: start: 20110614
  13. APIDRA [Concomitant]
     Active Substance: INSULIN GLULISINE
     Indication: DIABETES MELLITUS
     Route: 042
     Dates: start: 20151223
  14. THIAMINE. [Concomitant]
     Active Substance: THIAMINE
     Route: 042
     Dates: start: 20160203, end: 20160227
  15. TANTUM (SOUTH KOREA) [Concomitant]
     Route: 065
     Dates: start: 20151103
  16. PENIRAMIN [Concomitant]
     Route: 042
     Dates: start: 20151103
  17. YAMATETAN [Concomitant]
     Indication: LEUKOCYTOSIS
     Route: 042
     Dates: start: 20160115, end: 20160116
  18. LEGALON [Concomitant]
     Active Substance: DIETARY SUPPLEMENT\HERBALS\MILK THISTLE
     Dosage: 3 CAPSULES
     Route: 065
     Dates: start: 20160229
  19. HERCEPTIN [Suspect]
     Active Substance: TRASTUZUMAB
     Dosage: MAINTENECE DOSE?SUBSEQUENT DOSES WERE RECEIVED ON 15/DEC/2015, 05/JAN/2016, 26/JAN/2016 AND 16/FEB/2
     Route: 042
     Dates: start: 20151124
  20. DOCETAXEL. [Suspect]
     Active Substance: DOCETAXEL
     Dosage: SUBSEQUENT DOSE WAS RECEIVED ON 16/FEB/2016
     Route: 065
     Dates: start: 20160126
  21. PYRIDOXINE [Concomitant]
     Active Substance: PYRIDOXINE
     Route: 048
     Dates: start: 20151023
  22. KCL [Concomitant]
     Active Substance: POTASSIUM CHLORIDE
     Indication: HYPOKALAEMIA
     Route: 042
     Dates: start: 20160204, end: 20160228
  23. LEUCOSTIM [Concomitant]
     Active Substance: FILGRASTIM
     Dosage: 300 MCG
     Route: 042
     Dates: start: 20160223, end: 20160224
  24. MAXIPIME [Concomitant]
     Active Substance: CEFEPIME HYDROCHLORIDE
     Indication: NEUTROPENIA
     Route: 042
     Dates: start: 20151122, end: 20160223
  25. PERJETA [Suspect]
     Active Substance: PERTUZUMAB
     Indication: BREAST CANCER
     Dosage: LOADING DOSE
     Route: 065
     Dates: start: 20151103
  26. PERJETA [Suspect]
     Active Substance: PERTUZUMAB
     Dosage: MAINTENECE DOSE?SUBSEQUENT DOSES WERE RECEIVED ON 15/DEC/2015, 05/JAN/2016, 26/JAN/2016 AND 16/FEB/2
     Route: 065
     Dates: start: 20151124
  27. KYTRIL [Concomitant]
     Active Substance: GRANISETRON HYDROCHLORIDE
     Route: 048
     Dates: start: 20151103
  28. NEULASTA [Concomitant]
     Active Substance: PEGFILGRASTIM
     Route: 058
     Dates: start: 20151217, end: 20160218
  29. PROAMINE [Concomitant]
     Route: 042
     Dates: start: 20160105
  30. DOCETAXEL. [Suspect]
     Active Substance: DOCETAXEL
     Indication: BREAST CANCER
     Dosage: SUBSEQUENT DOSES WERE RECEIVED ON 24/NOV/2015, 15/DEC/2015, 05/JAN/2016, 26/JAN/2016 AND 16/FEB/2016
     Route: 065
     Dates: start: 20151103
  31. HERCEPTIN [Suspect]
     Active Substance: TRASTUZUMAB
     Indication: BREAST CANCER
     Dosage: LOADING DOSE
     Route: 042
     Dates: start: 20151103
  32. ALOXI [Concomitant]
     Active Substance: PALONOSETRON HYDROCHLORIDE
     Route: 042
     Dates: start: 20151103
  33. LIVALO [Concomitant]
     Active Substance: PITAVASTATIN CALCIUM
     Route: 048
     Dates: start: 20151023
  34. DIABEX [Concomitant]
     Active Substance: METFORMIN HYDROCHLORIDE
     Indication: DIABETES MELLITUS
     Route: 048
     Dates: start: 20151023
  35. DEXAMETHASONE. [Concomitant]
     Active Substance: DEXAMETHASONE
     Route: 042
     Dates: start: 20151104
  36. MACPERAN [Concomitant]
     Active Substance: METOCLOPRAMIDE HYDROCHLORIDE
     Indication: VOMITING
     Route: 048
     Dates: start: 20160116, end: 20160119
  37. LEUCOSTIM [Concomitant]
     Active Substance: FILGRASTIM
     Indication: FEBRILE NEUTROPENIA
     Dosage: 300 MCG
     Route: 042
     Dates: start: 20160203, end: 20160203
  38. KETORACIN (SOUTH KOREA) [Concomitant]
     Indication: FEBRILE NEUTROPENIA
     Route: 050
     Dates: start: 20160223, end: 20160223

REACTIONS (10)
  - Vomiting [Recovered/Resolved]
  - Febrile neutropenia [Recovered/Resolved]
  - Febrile neutropenia [Recovered/Resolved]
  - Hypocalcaemia [Not Recovered/Not Resolved]
  - Diarrhoea [Recovered/Resolved]
  - Dyspepsia [Not Recovered/Not Resolved]
  - Stomatitis [Not Recovered/Not Resolved]
  - Dizziness [Not Recovered/Not Resolved]
  - Neutropenia [Recovered/Resolved]
  - Anaemia [Not Recovered/Not Resolved]

NARRATIVE: CASE EVENT DATE: 20151112
